FAERS Safety Report 21321305 (Version 4)
Quarter: 2025Q2

REPORT INFORMATION
  Report Type: Spontaneous
  Country: JP (occurrence: JP)
  Receive Date: 20220912
  Receipt Date: 20250624
  Transmission Date: 20250716
  Serious: Yes (Other)
  Sender: NOVARTIS
  Company Number: JP-NOVARTISPH-NVSJ2022JP097004

PATIENT
  Sex: Male

DRUGS (1)
  1. COSENTYX [Suspect]
     Active Substance: SECUKINUMAB
     Indication: Product used for unknown indication
     Route: 058
     Dates: start: 20210609

REACTIONS (3)
  - Weight fluctuation [Unknown]
  - Body temperature fluctuation [Unknown]
  - Mood swings [Unknown]

NARRATIVE: CASE EVENT DATE: 20220905
